FAERS Safety Report 9844280 (Version 3)
Quarter: 2014Q1

REPORT INFORMATION
  Report Type: Spontaneous
  Country: IT (occurrence: IT)
  Receive Date: 20140127
  Receipt Date: 20140206
  Transmission Date: 20141002
  Serious: Yes (Hospitalization)
  Sender: FDA-Public Use
  Company Number: IT-ROCHE-1334203

PATIENT
  Age: 43 Year
  Sex: Male

DRUGS (4)
  1. RIBAVIRIN [Suspect]
     Indication: CHRONIC HEPATITIS
     Route: 048
     Dates: start: 20131209, end: 20140110
  2. INCIVO [Suspect]
     Indication: CHRONIC HEPATITIS
     Route: 048
     Dates: start: 20131209, end: 20140110
  3. PEGINTERFERON ALFA-2B [Suspect]
     Indication: CHRONIC HEPATITIS
     Route: 058
     Dates: start: 20131209, end: 20140110
  4. SUBUTEX [Concomitant]

REACTIONS (6)
  - Abdominal pain [Unknown]
  - Diarrhoea [Unknown]
  - Nausea [Unknown]
  - Vomiting [Unknown]
  - Hyperamylasaemia [Unknown]
  - Hyperlipasaemia [Unknown]
